FAERS Safety Report 18861169 (Version 5)
Quarter: 2021Q3

REPORT INFORMATION
  Report Type: Report from Study
  Country: US (occurrence: US)
  Receive Date: 20210208
  Receipt Date: 20210929
  Transmission Date: 20211014
  Serious: No
  Sender: FDA-Public Use
  Company Number: NVSC2021US022316

PATIENT
  Age: 66 Year
  Sex: Female

DRUGS (3)
  1. METOPROLOL. [Suspect]
     Active Substance: METOPROLOL
     Indication: PRODUCT USED FOR UNKNOWN INDICATION
     Dosage: UNK
     Route: 065
  2. ENTRESTO [Suspect]
     Active Substance: SACUBITRIL\VALSARTAN
     Indication: PRODUCT USED FOR UNKNOWN INDICATION
     Dosage: 50 MG, BID (24/26 MG)
     Route: 048
     Dates: start: 20210113
  3. LISINOPRIL. [Suspect]
     Active Substance: LISINOPRIL
     Indication: PRODUCT USED FOR UNKNOWN INDICATION
     Route: 065

REACTIONS (16)
  - Visual impairment [Unknown]
  - Anxiety [Unknown]
  - Joint injury [Recovering/Resolving]
  - Gait disturbance [Not Recovered/Not Resolved]
  - Swelling [Not Recovered/Not Resolved]
  - Discomfort [Unknown]
  - Feeling hot [Unknown]
  - Fall [Recovering/Resolving]
  - Cough [Recovered/Resolved]
  - Weight fluctuation [Unknown]
  - Insomnia [Unknown]
  - Dyspnoea [Recovered/Resolved]
  - Palpitations [Recovered/Resolved]
  - Pain in extremity [Not Recovered/Not Resolved]
  - Alopecia [Recovered/Resolved]
  - Dizziness [Unknown]

NARRATIVE: CASE EVENT DATE: 20210113
